FAERS Safety Report 10368288 (Version 1)
Quarter: 2014Q3

REPORT INFORMATION
  Report Type: Spontaneous
  Country: RU (occurrence: RU)
  Receive Date: 20140807
  Receipt Date: 20140807
  Transmission Date: 20150326
  Serious: Yes (Death)
  Sender: FDA-Public Use
  Company Number: RU-B.I. PHARMACEUTICALS,INC./RIDGEFIELD-2014-BI-35849RZ

PATIENT
  Age: 83 Year
  Sex: Female
  Weight: 100 kg

DRUGS (4)
  1. RIVAROXABANUM [Concomitant]
     Dosage: 15 MG
     Route: 065
     Dates: start: 20140610, end: 20140717
  2. PRADAXA [Suspect]
     Active Substance: DABIGATRAN ETEXILATE MESYLATE
     Indication: CORONARY ARTERY DISEASE
     Dosage: 220 MG
     Route: 048
     Dates: start: 20140717, end: 20140724
  3. HYPOTENSIVE [Concomitant]
     Active Substance: UNSPECIFIED INGREDIENT
     Indication: HYPOTENSION
     Route: 065
  4. PRADAXA [Suspect]
     Active Substance: DABIGATRAN ETEXILATE MESYLATE
     Indication: THROMBOSIS PROPHYLAXIS

REACTIONS (2)
  - Multi-organ failure [Fatal]
  - Duodenal ulcer haemorrhage [Fatal]

NARRATIVE: CASE EVENT DATE: 20140724
